FAERS Safety Report 6076992-4 (Version None)
Quarter: 2009Q1

REPORT INFORMATION
  Report Type: 
  Country: None (occurrence: None)
  Receive Date: 20090213
  Receipt Date: 20090212
  Transmission Date: 20090719
  Serious: Yes (Other)
  Sender: FDA-Public Use
  Company Number: US-BAYER-200838030NA

PATIENT
  Age: 36 Year
  Sex: Female

DRUGS (1)
  1. MIRENA [Suspect]
     Indication: CONTRACEPTION
     Route: 015
     Dates: start: 20061101, end: 20081003

REACTIONS (6)
  - BACK PAIN [None]
  - BLOOD POTASSIUM INCREASED [None]
  - FATIGUE [None]
  - PAIN IN EXTREMITY [None]
  - PROCEDURAL PAIN [None]
  - WEIGHT INCREASED [None]
